FAERS Safety Report 19841041 (Version 1)
Quarter: 2021Q3

REPORT INFORMATION
  Report Type: Spontaneous
  Country: CA (occurrence: CA)
  Receive Date: 20210915
  Receipt Date: 20210915
  Transmission Date: 20211014
  Serious: Yes (Hospitalization)
  Sender: FDA-Public Use
  Company Number: CA-PFIZER INC-202101145963

PATIENT
  Age: 3 Year
  Sex: Male
  Weight: 15 kg

DRUGS (45)
  1. THIOTEPA. [Suspect]
     Active Substance: THIOTEPA
     Indication: TRANSPLANT
     Dosage: 190 MG
     Route: 042
  2. DIPHENHYDRAMINE. [Concomitant]
     Active Substance: DIPHENHYDRAMINE
  3. FAMOTIDINE. [Concomitant]
     Active Substance: FAMOTIDINE
  4. RANITIDINE. [Concomitant]
     Active Substance: RANITIDINE
  5. CARBOPLATIN. [Suspect]
     Active Substance: CARBOPLATIN
     Indication: TRANSPLANT
     Dosage: 170 MG
     Route: 042
  6. FLUCONAZOLE. [Concomitant]
     Active Substance: FLUCONAZOLE
  7. LANSOPRAZOLE. [Concomitant]
     Active Substance: LANSOPRAZOLE
  8. LORAZEPAM. [Concomitant]
     Active Substance: LORAZEPAM
  9. METOCLOPRAMIDE. [Concomitant]
     Active Substance: METOCLOPRAMIDE
  10. AMLODIPINE [Concomitant]
     Active Substance: AMLODIPINE BESYLATE
  11. ATROPINE. [Concomitant]
     Active Substance: ATROPINE
  12. CETIRIZINE [Concomitant]
     Active Substance: CETIRIZINE HYDROCHLORIDE
  13. HYDROCORTISONE. [Concomitant]
     Active Substance: HYDROCORTISONE
  14. MIDAZOLAM. [Concomitant]
     Active Substance: MIDAZOLAM
  15. PANTOPRAZOLE [Concomitant]
     Active Substance: PANTOPRAZOLE
  16. POTASSIUM [Concomitant]
     Active Substance: POTASSIUM
  17. SOLIRIS [Concomitant]
     Active Substance: ECULIZUMAB
  18. ACYCLOVIR [ACICLOVIR] [Concomitant]
     Active Substance: ACYCLOVIR
  19. CLONIDINE. [Concomitant]
     Active Substance: CLONIDINE
  20. NABILONE [Concomitant]
     Active Substance: NABILONE
  21. PIPERACILLIN AND TAZOBACTAM [Concomitant]
     Active Substance: PIPERACILLIN SODIUM\TAZOBACTAM SODIUM
  22. VANCOMYCIN [Concomitant]
     Active Substance: VANCOMYCIN
  23. CHOLECALCIFEROL [Concomitant]
     Active Substance: CHOLECALCIFEROL
  24. ENOXAPARIN [Concomitant]
     Active Substance: ENOXAPARIN
  25. HYDROMORPHONE [Concomitant]
     Active Substance: HYDROMORPHONE
  26. LEVETIRACETAM. [Concomitant]
     Active Substance: LEVETIRACETAM
     Route: 065
  27. AMOXICILLIN. [Concomitant]
     Active Substance: AMOXICILLIN
  28. DEXMEDETOMIDINE. [Concomitant]
     Active Substance: DEXMEDETOMIDINE
  29. DOBUTAMINE [Concomitant]
     Active Substance: DOBUTAMINE HYDROCHLORIDE
  30. FILGRASTIM [Concomitant]
     Active Substance: FILGRASTIM
  31. MELATONIN [Concomitant]
     Active Substance: MELATONIN
  32. OLANZAPINE. [Concomitant]
     Active Substance: OLANZAPINE
  33. CALCIUM + VITAMIN D3 [Concomitant]
     Active Substance: CALCIUM CARBONATE\CHOLECALCIFEROL
  34. METOLAZONE. [Concomitant]
     Active Substance: METOLAZONE
  35. PRAZOSIN. [Concomitant]
     Active Substance: PRAZOSIN
  36. CARDENE [Concomitant]
     Active Substance: NICARDIPINE HYDROCHLORIDE
  37. CEFTAZIDIME. [Concomitant]
     Active Substance: CEFTAZIDIME
  38. DIMENHYDRINATE. [Concomitant]
     Active Substance: DIMENHYDRINATE
  39. FUROSEMIDE. [Concomitant]
     Active Substance: FUROSEMIDE
  40. KETAMINE [Concomitant]
     Active Substance: KETAMINE
  41. MYCAMINE [Concomitant]
     Active Substance: MICAFUNGIN SODIUM
  42. NOREPINEPHRINE. [Concomitant]
     Active Substance: NOREPINEPHRINE
  43. PENTAMIDINE ISETHIONATE. [Concomitant]
     Active Substance: PENTAMIDINE ISETHIONATE
  44. SPIRONOLACTONE. [Concomitant]
     Active Substance: SPIRONOLACTONE
  45. TRIMETHOPRIM SULFAMETHOXAZOLE [Concomitant]
     Active Substance: SULFAMETHOXAZOLE\TRIMETHOPRIM

REACTIONS (9)
  - Diarrhoea [Unknown]
  - Acute respiratory failure [Unknown]
  - Hepatic enzyme increased [Unknown]
  - Respiratory distress [Unknown]
  - Venoocclusive liver disease [Unknown]
  - Cholestasis [Unknown]
  - Pneumonitis [Unknown]
  - Nausea [Unknown]
  - Vomiting [Unknown]
